FAERS Safety Report 20581041 (Version 1)
Quarter: 2022Q1

REPORT INFORMATION
  Report Type: Spontaneous
  Country: FR (occurrence: FR)
  Receive Date: 20220311
  Receipt Date: 20220311
  Transmission Date: 20220423
  Serious: Yes (Other)
  Sender: FDA-Public Use
  Company Number: None

PATIENT
  Age: 47 Year
  Sex: Female
  Weight: 103 kg

DRUGS (9)
  1. APIDRA [Suspect]
     Active Substance: INSULIN GLULISINE
     Indication: Diabetes mellitus
     Dosage: 30 IU
     Route: 058
  2. COMIRNATY [Suspect]
     Active Substance: TOZINAMERAN
     Indication: COVID-19 immunisation
     Dosage: 1 DF, TOTAL
     Route: 030
     Dates: start: 20210618, end: 20210618
  3. TRESIBA [Suspect]
     Active Substance: INSULIN DEGLUDEC
     Indication: Diabetes mellitus
     Dosage: 52 IU
     Route: 058
  4. KARDEGIC [Concomitant]
     Active Substance: ASPIRIN DL-LYSINE
     Dosage: UNK
  5. RENITEC M [Concomitant]
     Dosage: UNK
  6. ATENOLOL [Concomitant]
     Active Substance: ATENOLOL
     Dosage: UNK
  7. LERCANIDIPINE HYDROCHLORIDE [Concomitant]
     Active Substance: LERCANIDIPINE HYDROCHLORIDE
     Dosage: UNK
  8. LERCANIDIPINE HYDROCHLORIDE [Concomitant]
     Active Substance: LERCANIDIPINE HYDROCHLORIDE
     Dosage: UNK
  9. ETANERCEPT [Concomitant]
     Active Substance: ETANERCEPT
     Dosage: UNK

REACTIONS (2)
  - Locked-in syndrome [Recovered/Resolved]
  - Hypoglycaemia [Recovered/Resolved]
